FAERS Safety Report 8238841-5 (Version None)
Quarter: 2012Q1

REPORT INFORMATION
  Report Type: 
  Country: None (occurrence: None)
  Receive Date: 20120327
  Receipt Date: 20120323
  Transmission Date: 20120608
  Serious: Yes (Death, Other)
  Sender: FDA-Public Use
  Company Number: US-GENZYME-CLOF-1002061

PATIENT
  Sex: Male
  Weight: 71.8 kg

DRUGS (13)
  1. LOSARTAN POTASSIUM [Concomitant]
     Indication: HYPERTENSION
     Dosage: 50 MG, QD
     Route: 048
     Dates: start: 20110518, end: 20120208
  2. ONDANSETRON [Concomitant]
     Indication: PRODUCT USED FOR UNKNOWN INDICATION
     Dosage: 8 MG, PRN
     Route: 065
  3. PLATELETS [Concomitant]
     Indication: PRODUCT USED FOR UNKNOWN INDICATION
     Dosage: UNK
     Route: 065
  4. LEVAQUIN [Concomitant]
     Indication: INFECTION PROPHYLAXIS
     Dosage: 500 MG, QD
     Route: 048
     Dates: start: 20100907, end: 20120207
  5. FLUCONAZOLE [Concomitant]
     Indication: INFECTION PROPHYLAXIS
     Dosage: 400 MG, QD
     Route: 048
     Dates: start: 20100712, end: 20120210
  6. CLOFARABINE [Suspect]
     Indication: ACUTE MYELOID LEUKAEMIA
     Dosage: 60 MG, ONCE ON DAYS 3, 6, 7
     Route: 048
     Dates: start: 20120123, end: 20120129
  7. PREDNISONE TAB [Concomitant]
     Indication: MYALGIA
     Dosage: 10 MG, QD
     Route: 048
     Dates: start: 20120106, end: 20120208
  8. CITALOPRAM HYDROBROMIDE [Concomitant]
     Indication: DEPRESSION
     Dosage: 20 MG, QD
     Route: 048
     Dates: start: 20120125, end: 20120208
  9. HYDROCHLOROTHIAZIDE [Concomitant]
     Indication: HYPERTENSION
     Dosage: 25 MG, QD
     Route: 048
     Dates: start: 20071023, end: 20120208
  10. CLOFARABINE [Suspect]
     Dosage: 28 MG, ON DAYS 1 AND 5
     Route: 042
     Dates: start: 20120123, end: 20120129
  11. DEXAMETHASONE [Concomitant]
     Indication: PROPHYLAXIS
     Dosage: 4 MG, UNK
     Route: 048
     Dates: start: 20120128
  12. MURO-128 [Concomitant]
     Indication: PRODUCT USED FOR UNKNOWN INDICATION
     Dosage: 5 %, QD
     Route: 065
  13. PRILOSEC [Concomitant]
     Indication: GASTROOESOPHAGEAL REFLUX DISEASE
     Dosage: 20 MG, BID
     Route: 048
     Dates: start: 20120128, end: 20120208

REACTIONS (2)
  - FALL [None]
  - ALPHA HAEMOLYTIC STREPTOCOCCAL INFECTION [None]
